FAERS Safety Report 5642394-5 (Version None)
Quarter: 2008Q1

REPORT INFORMATION
  Report Type: 
  Country: None (occurrence: None)
  Receive Date: 20080227
  Receipt Date: 20080227
  Transmission Date: 20080703
  Serious: Yes (Disabling, Other)
  Sender: FDA-Public Use
  Company Number: None

PATIENT
  Age: 59 Year
  Sex: Female

DRUGS (5)
  1. FOSAMAX [Suspect]
     Indication: OSTEOPOROSIS
     Dosage: 10MG/DAILY
     Dates: start: 19960801, end: 20040823
  2. METHOTREXATE [Concomitant]
  3. PREMARIN [Concomitant]
  4. TRAZODONE HCL [Concomitant]
  5. PROMETRIUM [Concomitant]

REACTIONS (1)
  - OSTEONECROSIS [None]
